FAERS Safety Report 9204605 (Version 1)
Quarter: 2013Q2

REPORT INFORMATION
  Report Type: Spontaneous
  Country: IT (occurrence: IT)
  Receive Date: 20130402
  Receipt Date: 20130402
  Transmission Date: 20140414
  Serious: Yes (Hospitalization)
  Sender: FDA-Public Use
  Company Number: IT-BAYER-2013-037479

PATIENT
  Age: 52 Year
  Sex: Female

DRUGS (1)
  1. ASPIRINA [Suspect]
     Indication: NASOPHARYNGITIS
     Dosage: DAILY DOSE 1 DF
     Route: 048
     Dates: start: 20121201, end: 20121203

REACTIONS (2)
  - Adenoidal hypertrophy [Recovered/Resolved]
  - Suffocation feeling [Recovered/Resolved]
